FAERS Safety Report 7657234-2 (Version None)
Quarter: 2011Q3

REPORT INFORMATION
  Report Type: 
  Country: None (occurrence: None)
  Receive Date: 20110804
  Receipt Date: 20110720
  Transmission Date: 20111222
  Serious: Yes (Other)
  Sender: FDA-Public Use
  Company Number: PHHY2011US45099

PATIENT

DRUGS (9)
  1. METFORMIN HCL [Suspect]
     Dosage: 500 MG, UNK
     Dates: start: 20110503, end: 20110510
  2. VYTORIN [Concomitant]
     Dosage: 1 DF (10MG OF EZET AND 50MG OF SIMVA) , QD
     Dates: start: 20110304
  3. METAXALONE [Concomitant]
     Indication: MUSCLE SPASMS
     Dosage: 800 MG, PRN
     Dates: start: 20110304
  4. METFORMIN HCL [Suspect]
     Dosage: 500 MG, QD
     Dates: start: 20110304, end: 20110330
  5. NAPROXEN [Concomitant]
     Dosage: 220 MG, AT HS (NIGHT)
     Dates: start: 20110304
  6. DIOVAN HCT [Suspect]
     Dosage: 1 DF (160 MG OF VALS AND 12.5MG OF HYDR), QD
     Dates: start: 20110304, end: 20110330
  7. FLUCONAZOLE [Concomitant]
     Dosage: 150 MG, UNK
     Dates: start: 20110304, end: 20110330
  8. TERBINAFINE HCL [Concomitant]
     Dosage: 250 MG, BID
     Dates: start: 20110304, end: 20110330
  9. RANITIDINE [Concomitant]
     Dosage: 3 DF, ONE EACH A.M AND TWO EACH P.M
     Dates: start: 20110304

REACTIONS (17)
  - MOUTH ULCERATION [None]
  - MYALGIA [None]
  - MUSCLE SPASMS [None]
  - ARTHRALGIA [None]
  - AORTIC STENOSIS [None]
  - FATIGUE [None]
  - SYNCOPE [None]
  - LETHARGY [None]
  - DYSGEUSIA [None]
  - DECREASED APPETITE [None]
  - WEIGHT DECREASED [None]
  - ORAL PAIN [None]
  - DYSPNOEA [None]
  - PALPITATIONS [None]
  - CHEST PAIN [None]
  - JAW DISORDER [None]
  - JOINT RANGE OF MOTION DECREASED [None]
